FAERS Safety Report 14647975 (Version 1)
Quarter: 2018Q1

REPORT INFORMATION
  Report Type: Spontaneous
  Country: ES (occurrence: ES)
  Receive Date: 20180316
  Receipt Date: 20180316
  Transmission Date: 20180509
  Serious: Yes (Hospitalization)
  Sender: FDA-Public Use
  Company Number: ES-TEVA-2018-ES-868237

PATIENT
  Age: 53 Year
  Sex: Male

DRUGS (1)
  1. TENOFOVIR (2838A) [Suspect]
     Active Substance: TENOFOVIR
     Dosage: 1 COMPRESSED EVERY 24 H
     Route: 048

REACTIONS (3)
  - Metabolic acidosis [Recovering/Resolving]
  - Hyperkalaemia [Recovering/Resolving]
  - Acute kidney injury [Recovering/Resolving]
